FAERS Safety Report 4355896-9 (Version None)
Quarter: 2004Q2

REPORT INFORMATION
  Report Type: 
  Country: None (occurrence: None)
  Receive Date: 20040505
  Receipt Date: 20040426
  Transmission Date: 20050107
  Serious: Yes (Hospitalization, Other)
  Sender: FDA-Public Use
  Company Number: FRWYE722626APR04

PATIENT
  Age: 71 Year
  Sex: Male

DRUGS (4)
  1. OXAZEPAM [Suspect]
     Indication: ANXIETY
     Dosage: 150 MG DAILY
     Route: 048
     Dates: start: 20040203, end: 20040218
  2. RAMIPRIL [Suspect]
     Indication: HYPERTENSION
     Route: 048
     Dates: start: 20040204, end: 20040218
  3. GLUCOPHAGE [Concomitant]
  4. ROCEFIN (CEFTRIAXONE SODIUM) [Concomitant]

REACTIONS (1)
  - LEUKOCYTOCLASTIC VASCULITIS [None]
